FAERS Safety Report 6284709-3 (Version None)
Quarter: 2009Q3

REPORT INFORMATION
  Report Type: 
  Country: None (occurrence: None)
  Receive Date: 20090727
  Receipt Date: 20090714
  Transmission Date: 20100115
  Serious: Yes (Other)
  Sender: FDA-Public Use
  Company Number: GB-ELI_LILLY_AND_COMPANY-GB200907002583

PATIENT
  Age: 9 Year
  Sex: Male
  Weight: 44.8 kg

DRUGS (2)
  1. STRATTERA [Suspect]
     Indication: ATTENTION DEFICIT/HYPERACTIVITY DISORDER
     Dosage: 60 MG, UNKNOWN
     Route: 048
     Dates: start: 20090507, end: 20090707
  2. AMOXICILLIN [Concomitant]
     Indication: TONSILLITIS
     Dosage: UNK, UNKNOWN
     Route: 065

REACTIONS (2)
  - CHEST PAIN [None]
  - PALPITATIONS [None]
